FAERS Safety Report 16094797 (Version 1)
Quarter: 2019Q1

REPORT INFORMATION
  Report Type: Spontaneous
  Country: US (occurrence: US)
  Receive Date: 20190218
  Receipt Date: 20190218
  Transmission Date: 20190418
  Serious: No
  Sender: FDA-Public Use
  Company Number: None

PATIENT
  Age: 31 Year
  Sex: Female

DRUGS (1)
  1. HUMIRA [Suspect]
     Active Substance: ADALIMUMAB
     Indication: PSORIASIS
     Route: 058
     Dates: start: 201901

REACTIONS (4)
  - Injection site extravasation [None]
  - Injection site pain [None]
  - Device malfunction [None]
  - Injection site haemorrhage [None]

NARRATIVE: CASE EVENT DATE: 20190208
